FAERS Safety Report 15980564 (Version 1)
Quarter: 2019Q1

REPORT INFORMATION
  Report Type: Spontaneous
  Country: US (occurrence: US)
  Receive Date: 20190219
  Receipt Date: 20190219
  Transmission Date: 20190418
  Serious: No
  Sender: FDA-Public Use
  Company Number: US-PFIZER INC-2019072183

PATIENT
  Age: 69 Year
  Sex: Female
  Weight: 60.33 kg

DRUGS (2)
  1. XANAX [Suspect]
     Active Substance: ALPRAZOLAM
     Dosage: UNK
  2. XANAX [Suspect]
     Active Substance: ALPRAZOLAM
     Indication: DEPRESSION
     Dosage: 1 MG, UNK

REACTIONS (3)
  - Drug withdrawal syndrome [Unknown]
  - Product use in unapproved indication [Unknown]
  - Tremor [Unknown]
